FAERS Safety Report 9282957 (Version 1)
Quarter: 2013Q2

REPORT INFORMATION
  Report Type: Spontaneous
  Country: TR (occurrence: TR)
  Receive Date: 20130510
  Receipt Date: 20130510
  Transmission Date: 20140414
  Serious: Yes (Other)
  Sender: FDA-Public Use
  Company Number: TR-ROCHE-1222915

PATIENT
  Age: 34 Year
  Sex: Female

DRUGS (3)
  1. COUMADINE [Concomitant]
  2. ZADITEN [Concomitant]
  3. XOLAIR [Suspect]
     Indication: ASTHMA
     Route: 065

REACTIONS (2)
  - Epistaxis [Recovered/Resolved]
  - Rash [Recovered/Resolved]
